FAERS Safety Report 13318929 (Version 3)
Quarter: 2017Q4

REPORT INFORMATION
  Report Type: Report from Study
  Country: US (occurrence: US)
  Receive Date: 20170310
  Receipt Date: 20171212
  Transmission Date: 20180320
  Serious: Yes (Other)
  Sender: FDA-Public Use
  Company Number: US-INCYTE CORPORATION-2017IN001073

PATIENT

DRUGS (4)
  1. JAKAFI [Suspect]
     Active Substance: RUXOLITINIB
     Indication: POLYCYTHAEMIA VERA
     Dosage: NOT SPECIFIED
     Route: 048
     Dates: start: 201412, end: 201509
  2. JAKAFI [Suspect]
     Active Substance: RUXOLITINIB
     Dosage: 5 MG, BID
     Route: 048
     Dates: start: 201701, end: 20170213
  3. HYDROXYUREA. [Suspect]
     Active Substance: HYDROXYUREA
     Indication: PRODUCT USED FOR UNKNOWN INDICATION
  4. JAKAFI [Suspect]
     Active Substance: RUXOLITINIB
     Dosage: 5 MG, QD
     Dates: start: 20170213, end: 2017

REACTIONS (8)
  - Renal impairment [Unknown]
  - Narcolepsy [Unknown]
  - Sleep terror [Unknown]
  - Insomnia [Unknown]
  - Blood count abnormal [Unknown]
  - Hepatic function abnormal [Unknown]
  - Fatigue [Recovering/Resolving]
  - Meningitis [Unknown]

NARRATIVE: CASE EVENT DATE: 201711
